FAERS Safety Report 6328312-5 (Version None)
Quarter: 2009Q3

REPORT INFORMATION
  Report Type: 
  Country: None (occurrence: None)
  Receive Date: 20090825
  Receipt Date: 20090519
  Transmission Date: 20100115
  Serious: No
  Sender: FDA-Public Use
  Company Number: US-ABBOTT-09P-163-0574627-00

PATIENT
  Sex: Female
  Weight: 55.388 kg

DRUGS (10)
  1. SYNTHROID [Suspect]
     Indication: HYPOTHYROIDISM
     Route: 048
  2. SYNTHROID [Suspect]
     Route: 048
  3. VITAMIN B-12 [Concomitant]
     Indication: PERFORATED ULCER
     Route: 058
  4. NEURONTIN [Concomitant]
     Indication: BACK PAIN
     Route: 048
  5. PRILOSEC [Concomitant]
     Indication: PROPHYLAXIS AGAINST GASTROINTESTINAL ULCER
     Route: 048
  6. PREMARIN [Concomitant]
     Indication: HORMONE REPLACEMENT THERAPY
     Route: 048
  7. AMBIEN [Concomitant]
     Indication: INSOMNIA
     Route: 048
  8. AMITRIPTYLINE [Concomitant]
     Indication: NERVE INJURY
     Route: 048
  9. NITROFURANTOIN [Concomitant]
     Indication: URINARY TRACT INFECTION
     Dosage: UNKNOWN STRENGTH
     Route: 048
  10. REQUIP [Concomitant]
     Indication: BACK DISORDER
     Route: 048

REACTIONS (4)
  - DYSPEPSIA [None]
  - HEADACHE [None]
  - NAUSEA [None]
  - VOMITING [None]
